FAERS Safety Report 7338673-6 (Version None)
Quarter: 2011Q1

REPORT INFORMATION
  Report Type: 
  Country: None (occurrence: None)
  Receive Date: 20110308
  Receipt Date: 20110228
  Transmission Date: 20110831
  Serious: Yes (Hospitalization)
  Sender: FDA-Public Use
  Company Number: A0889411A

PATIENT
  Age: 33 Year
  Sex: Female
  Weight: 118.2 kg

DRUGS (1)
  1. AVANDIA [Suspect]
     Indication: DIABETES MELLITUS
     Dosage: 4MG PER DAY
     Route: 048
     Dates: start: 20010201, end: 20020401

REACTIONS (10)
  - MYOCARDIAL INFARCTION [None]
  - DEEP VEIN THROMBOSIS [None]
  - CEREBROVASCULAR ACCIDENT [None]
  - ANXIETY [None]
  - ANHEDONIA [None]
  - QUALITY OF LIFE DECREASED [None]
  - CORONARY ARTERY DISEASE [None]
  - IN-STENT CORONARY ARTERY RESTENOSIS [None]
  - BLINDNESS [None]
  - MULTIPLE INJURIES [None]
